FAERS Safety Report 4533312-1 (Version None)
Quarter: 2004Q4

REPORT INFORMATION
  Report Type: 
  Country: None (occurrence: None)
  Receive Date: 20041221
  Receipt Date: 20021016
  Transmission Date: 20050328
  Serious: Yes (Life-Threatening, Hospitalization)
  Sender: FDA-Public Use
  Company Number: GXKR2002DE00440

PATIENT
  Age: 65 Year
  Sex: Female

DRUGS (7)
  1. LISINOPRIL [Suspect]
     Indication: HYPERTENSION
     Dosage: 5 MG/ DAY
     Route: 048
     Dates: end: 20020805
  2. DIOVAN [Suspect]
     Indication: HYPERTENSION
     Dosage: 80 MG, BID
     Route: 048
     Dates: end: 20020805
  3. FINLEPSIN [Suspect]
     Indication: HEMIPARESIS
     Dosage: UNK, UNK
     Route: 048
     Dates: start: 19800101
  4. KARVEZIDE [Suspect]
     Indication: HYPERTENSION
     Dosage: 1 DF, QD
     Dates: start: 20020806, end: 20020807
  5. ORFIRIL [Suspect]
     Indication: PROPHYLAXIS
     Dosage: 600 MG, BID
     Route: 048
     Dates: start: 19900101, end: 20020809
  6. ORFIRIL [Suspect]
     Dosage: 300 MG, BID
     Route: 048
     Dates: start: 20020810
  7. JENACARD [Concomitant]
     Dosage: 40 MG, BID
     Route: 048

REACTIONS (8)
  - ABDOMINAL PAIN UPPER [None]
  - DIARRHOEA [None]
  - DRUG INTERACTION [None]
  - HEADACHE [None]
  - HEPATITIS CHOLESTATIC [None]
  - HYPERTENSION [None]
  - NAUSEA [None]
  - VOMITING [None]
